FAERS Safety Report 23046581 (Version 1)
Quarter: 2023Q4

REPORT INFORMATION
  Report Type: Spontaneous
  Country: BG (occurrence: BG)
  Receive Date: 20231009
  Receipt Date: 20231009
  Transmission Date: 20240110
  Serious: Yes (Hospitalization, Other)
  Sender: FDA-Public Use
  Company Number: BG-009507513-2310BGR000946

PATIENT
  Age: 63 Year
  Sex: Male

DRUGS (1)
  1. PEMBROLIZUMAB [Suspect]
     Active Substance: PEMBROLIZUMAB
     Indication: Small cell lung cancer
     Dosage: UNK

REACTIONS (5)
  - Hypothyroidism [Unknown]
  - Disorientation [Unknown]
  - Asthenia [Unknown]
  - Bradyphrenia [Unknown]
  - Hypophysitis [Unknown]
